FAERS Safety Report 21289978 (Version 1)
Quarter: 2022Q3

REPORT INFORMATION
  Report Type: Spontaneous
  Country: ES (occurrence: ES)
  Receive Date: 20220902
  Receipt Date: 20220902
  Transmission Date: 20221027
  Serious: Yes (Hospitalization, Other)
  Sender: FDA-Public Use
  Company Number: ES-Accord-271049

PATIENT
  Age: 62 Year
  Sex: Male
  Weight: 82.1 kg

DRUGS (24)
  1. GEMCITABINE HYDROCHLORIDE [Suspect]
     Active Substance: GEMCITABINE HYDROCHLORIDE
     Dosage: 1000 MG/M2, CYCLIC (EVERY 2 WEEKS)
     Dates: start: 20220630
  2. OXALIPLATIN [Suspect]
     Active Substance: OXALIPLATIN
     Dosage: 1Q2W
     Dates: start: 20220630, end: 20220630
  3. EPCORITAMAB [Suspect]
     Active Substance: EPCORITAMAB
     Dosage: INTERMEDIATE DOSE, SINGLE
     Route: 058
     Dates: start: 20220707, end: 20220707
  4. EPCORITAMAB [Suspect]
     Active Substance: EPCORITAMAB
     Dosage: 160 MG, SINGLE (PRIMING DOSE)
     Route: 058
     Dates: start: 20220630, end: 20220630
  5. EPCORITAMAB [Suspect]
     Active Substance: EPCORITAMAB
     Dosage: PRIMING DOSE, SINGLE
     Route: 058
     Dates: start: 20220630, end: 20220630
  6. OMEPRAZOLE [Concomitant]
     Active Substance: OMEPRAZOLE
     Dates: start: 2022
  7. VITAMIN D NOS [Concomitant]
     Active Substance: VITAMIN D NOS
  8. LORAZEPAM [Concomitant]
     Active Substance: LORAZEPAM
  9. LORAZEPAM [Concomitant]
     Active Substance: LORAZEPAM
  10. SULFAMETHOXAZOLE\TRIMETHOPRIM [Concomitant]
     Active Substance: SULFAMETHOXAZOLE\TRIMETHOPRIM
     Dates: start: 20220629
  11. ACETAMINOPHEN [Concomitant]
     Active Substance: ACETAMINOPHEN
     Dosage: 1 G
     Dates: start: 20220707, end: 20220707
  12. ACETAMINOPHEN [Concomitant]
     Active Substance: ACETAMINOPHEN
     Dosage: UNK
     Dates: start: 20220712, end: 20220718
  13. ACYCLOVIR [Concomitant]
     Active Substance: ACYCLOVIR
     Dates: start: 202202
  14. CYCLOPENTOLATE HYDROCHLORIDE [Concomitant]
     Active Substance: CYCLOPENTOLATE HYDROCHLORIDE
     Dosage: UNK
     Dates: start: 202206, end: 20220711
  15. ENOXAPARIN SODIUM [Concomitant]
     Active Substance: ENOXAPARIN SODIUM
     Dates: start: 20220624, end: 20220711
  16. TRAMADOL HCL [Concomitant]
     Active Substance: TRAMADOL HYDROCHLORIDE
     Dates: start: 202206, end: 20220711
  17. BISOPROLOL FUMARATE [Concomitant]
     Active Substance: BISOPROLOL FUMARATE
     Dates: start: 201210, end: 20220711
  18. DEXCHLORPHENIRAMINE MALEATE [Concomitant]
     Active Substance: DEXCHLORPHENIRAMINE MALEATE
     Dosage: 5 MG
     Dates: start: 20220707, end: 20220707
  19. CYCLOPENTOLATE [Concomitant]
     Active Substance: CYCLOPENTOLATE
     Dates: start: 202206, end: 20220711
  20. MAGNESIUM [Concomitant]
     Active Substance: MAGNESIUM
     Dates: start: 20220713, end: 20220718
  21. METOCLOPRAMIDE HYDROCHLORIDE [Concomitant]
     Active Substance: METOCLOPRAMIDE HYDROCHLORIDE
     Dates: start: 20220712, end: 20220718
  22. CHOLECALCIFEROL [Concomitant]
     Active Substance: CHOLECALCIFEROL
     Dosage: UNK
     Dates: start: 201210, end: 20220711
  23. SULFAMETHOXAZOLE AND TRIMETHOPRIM [Concomitant]
     Active Substance: SULFAMETHOXAZOLE\TRIMETHOPRIM
     Dates: start: 20220629
  24. POTASSIUM [Concomitant]
     Active Substance: POTASSIUM
     Dates: start: 20220713, end: 20220718

REACTIONS (3)
  - Diarrhoea [Recovered/Resolved]
  - Vena cava thrombosis [Not Recovered/Not Resolved]
  - Off label use [Unknown]

NARRATIVE: CASE EVENT DATE: 20220630
